FAERS Safety Report 4298636-4 (Version None)
Quarter: 2004Q1

REPORT INFORMATION
  Report Type: 
  Country: None (occurrence: None)
  Receive Date: 20040218
  Receipt Date: 20030630
  Transmission Date: 20041129
  Serious: Yes (Other)
  Sender: FDA-Public Use
  Company Number: US-GLAXOSMITHKLINE-A0414383A

PATIENT
  Age: 18 Year
  Sex: Male

DRUGS (1)
  1. PAXIL [Suspect]
     Route: 048
     Dates: start: 20030416, end: 20030702

REACTIONS (8)
  - AGITATION [None]
  - EMOTIONAL DISORDER [None]
  - EUPHORIC MOOD [None]
  - HYPERVIGILANCE [None]
  - INSOMNIA [None]
  - MANIA [None]
  - PERSONALITY CHANGE [None]
  - PSYCHOMOTOR HYPERACTIVITY [None]
